FAERS Safety Report 5400067-8 (Version None)
Quarter: 2007Q3

REPORT INFORMATION
  Report Type: 
  Country: None (occurrence: None)
  Receive Date: 20070726
  Receipt Date: 20070726
  Transmission Date: 20080115
  Serious: Yes (Life-Threatening, Hospitalization)
  Sender: FDA-Public Use
  Company Number: None

PATIENT
  Age: 88 Year
  Sex: Female

DRUGS (1)
  1. ENBREL [Suspect]
     Indication: RHEUMATOID ARTHRITIS
     Dates: start: 20011111, end: 20070614

REACTIONS (4)
  - CONFUSIONAL STATE [None]
  - DISEASE RECURRENCE [None]
  - HYPERCALCAEMIA [None]
  - LYMPHOMA [None]
